FAERS Safety Report 9153637 (Version 2)
Quarter: 2013Q1

REPORT INFORMATION
  Report Type: Spontaneous
  Country: JP (occurrence: None)
  Receive Date: 20130204
  Receipt Date: 20130208
  Transmission Date: 20140127
  Serious: Yes (Hospitalization)
  Sender: FDA-Public Use
  Company Number: PNIS20130001

PATIENT
  Age: 51 Year
  Sex: Female

DRUGS (2)
  1. PREDNISOLONE [Suspect]
     Indication: STEROID THERAPY
     Dosage: 1 IN 1 D,DOSE REDUCED, UNKNOWN, ORAL
     Route: 048
  2. TACROLIMUS (TACROLIMUS) (2.5  MILLIGRAM, UNKNOWN) [Suspect]
     Route: 048

REACTIONS (8)
  - Posterior reversible encephalopathy syndrome [None]
  - Scleroderma renal crisis [None]
  - Overlap syndrome [None]
  - Faecal incontinence [None]
  - Thrombotic thrombocytopenic purpura [None]
  - Blood pressure increased [None]
  - Visual impairment [None]
  - Loss of consciousness [None]
